FAERS Safety Report 9321108 (Version 1)
Quarter: 2013Q2

REPORT INFORMATION
  Report Type: Spontaneous
  Country: US (occurrence: None)
  Receive Date: 20130530
  Receipt Date: 20130530
  Transmission Date: 20140414
  Serious: No
  Sender: FDA-Public Use
  Company Number: None

PATIENT
  Age: 69 Year
  Sex: Female
  Weight: 61.24 kg

DRUGS (1)
  1. PNEUMOVAX [Suspect]
     Dosage: 0.5 ML PPV23 IM
     Route: 030
     Dates: start: 20130521

REACTIONS (7)
  - Pain in extremity [None]
  - Movement disorder [None]
  - Nausea [None]
  - Dizziness [None]
  - Asthenia [None]
  - Body temperature increased [None]
  - Dry mouth [None]
